FAERS Safety Report 20106462 (Version 1)
Quarter: 2021Q4

REPORT INFORMATION
  Report Type: Spontaneous
  Country: GB (occurrence: GB)
  Receive Date: 20211124
  Receipt Date: 20211124
  Transmission Date: 20220303
  Serious: Yes (Other)
  Sender: FDA-Public Use
  Company Number: GB-MHRA-EMIS-12951-1febf3ba-2617-4ad0-a4b5-bf055727c391

PATIENT
  Age: 31 Year
  Sex: Female
  Weight: 95 kg

DRUGS (2)
  1. DULOXETINE [Suspect]
     Active Substance: DULOXETINE
     Indication: Neuropathy peripheral
     Dosage: 20 MILLIGRAM, ONCE A DAY(EACH MORNING)
     Route: 065
     Dates: start: 20211001, end: 20211110
  2. GABAPENTIN [Concomitant]
     Active Substance: GABAPENTIN
     Indication: Product used for unknown indication
     Dosage: 84 MILLIGRAM(100MG)
     Route: 065
     Dates: start: 20210301

REACTIONS (4)
  - Hypersensitivity [Recovered/Resolved]
  - Dizziness [Recovered/Resolved]
  - Swollen tongue [Recovered/Resolved]
  - Dyspnoea [Recovered/Resolved]

NARRATIVE: CASE EVENT DATE: 20211001
